FAERS Safety Report 6652136-2 (Version None)
Quarter: 2010Q1

REPORT INFORMATION
  Report Type: 
  Country: None (occurrence: None)
  Receive Date: 20100325
  Receipt Date: 20100318
  Transmission Date: 20100710
  Serious: Yes (Hospitalization)
  Sender: FDA-Public Use
  Company Number: FR-ABBOTT-10P-056-0632000-00

PATIENT
  Sex: Male

DRUGS (7)
  1. LIPANTHYL [Suspect]
     Indication: DYSLIPIDAEMIA
     Route: 048
  2. COTRIATEC [Suspect]
     Indication: HYPERTENSION
     Route: 048
     Dates: end: 20090101
  3. NEXIUM [Concomitant]
     Indication: DRUG USE FOR UNKNOWN INDICATION
     Route: 048
     Dates: end: 20090101
  4. NICOBION [Concomitant]
     Indication: CIRRHOSIS ALCOHOLIC
     Route: 048
  5. DIFFU-K [Concomitant]
     Indication: HYPOKALAEMIA
     Route: 048
  6. VITAMINE B1 B6 BAYER [Concomitant]
     Indication: HYPOVITAMINOSIS
     Route: 048
  7. TADENAN [Concomitant]
     Indication: PROSTATIC ADENOMA
     Route: 048

REACTIONS (3)
  - CONFUSIONAL STATE [None]
  - FALL [None]
  - HAEMOLYTIC ANAEMIA [None]
